FAERS Safety Report 24956193 (Version 1)
Quarter: 2025Q1

REPORT INFORMATION
  Report Type: Spontaneous
  Country: FR (occurrence: FR)
  Receive Date: 20250211
  Receipt Date: 20250211
  Transmission Date: 20250408
  Serious: Yes (Hospitalization)
  Sender: SANDOZ
  Company Number: FR-ROCHE-3562146

PATIENT
  Age: 74 Year
  Sex: Male
  Weight: 83 kg

DRUGS (32)
  1. CYCLOPHOSPHAMIDE [Suspect]
     Active Substance: CYCLOPHOSPHAMIDE
     Indication: Diffuse large B-cell lymphoma
     Dosage: ON 29/APR/2024, HE RECEIVED MOST RECENT DOSE OF CYCLOPHOSPHAMIDE PRIOR TO AE AND SAE.
     Route: 042
     Dates: start: 20240411
  2. DOXORUBICIN HYDROCHLORIDE [Suspect]
     Active Substance: DOXORUBICIN HYDROCHLORIDE
     Indication: Diffuse large B-cell lymphoma
     Dosage: ON 29/APR/2024, HE RECEIVED MOST RECENT DOSE OF DOXORUBICIN PRIOR TO AE AND SAE.
     Route: 042
     Dates: start: 20240411
  3. GLOFITAMAB [Suspect]
     Active Substance: GLOFITAMAB
     Indication: Diffuse large B-cell lymphoma
     Dosage: ON 07/MAY/2024, HE RECEIVED MOST RECENT DOSE OF GLOFITAMAB 2.5 MG PRIOR TO AE AND SAE.
     Route: 042
     Dates: start: 20240507
  4. GLOFITAMAB [Suspect]
     Active Substance: GLOFITAMAB
     Route: 042
     Dates: start: 20240507
  5. PREDNISONE [Suspect]
     Active Substance: PREDNISONE
     Indication: Diffuse large B-cell lymphoma
     Dosage: ON 03/MAY/2024, HE RECEIVED MOST RECENT DOSE OF PREDNISONE PRIOR TO AE AND SAE.
     Route: 048
     Dates: start: 20240410
  6. BACTRIM [Concomitant]
     Active Substance: SULFAMETHOXAZOLE\TRIMETHOPRIM
     Indication: Product used for unknown indication
     Route: 048
     Dates: start: 20240409
  7. CETIRIZINE [Concomitant]
     Active Substance: CETIRIZINE HYDROCHLORIDE
     Indication: Urticaria
     Dosage: 1.000DF QD
     Route: 048
  8. DEXAMETHASONE [Concomitant]
     Active Substance: DEXAMETHASONE
     Indication: Product used for unknown indication
     Dosage: 20.000MG QD
     Route: 042
     Dates: start: 20240514, end: 20240514
  9. DEXAMETHASONE [Concomitant]
     Active Substance: DEXAMETHASONE
     Dosage: 20.000MG QD
     Route: 042
     Dates: start: 20240507, end: 20240507
  10. EMEND [Concomitant]
     Active Substance: APREPITANT
     Indication: Product used for unknown indication
     Dosage: 125.000MG QD
     Route: 048
     Dates: start: 20240410, end: 20240410
  11. EMEND [Concomitant]
     Active Substance: APREPITANT
     Dosage: 80.000MG QD
     Route: 048
     Dates: start: 20240411, end: 20240412
  12. ESOMEPRAZOLE [Concomitant]
     Active Substance: ESOMEPRAZOLE
     Indication: Product used for unknown indication
     Dosage: 20.000MG QD
     Route: 048
  13. IRBESARTAN [Concomitant]
     Active Substance: IRBESARTAN
     Indication: Hypertension
     Dosage: 300.000MG QD
     Route: 048
  14. LEUCOVORIN CALCIUM [Concomitant]
     Active Substance: LEUCOVORIN CALCIUM
     Indication: Product used for unknown indication
     Route: 048
     Dates: start: 20240409
  15. LERCANIDIPINE [Concomitant]
     Active Substance: LERCANIDIPINE
     Indication: Hypertension
     Dosage: 20.000MG QD
     Route: 048
  16. ACETAMINOPHEN [Concomitant]
     Active Substance: ACETAMINOPHEN
     Indication: Product used for unknown indication
     Dosage: 1.000G QD
     Route: 048
     Dates: start: 20240410, end: 20240410
  17. ACETAMINOPHEN [Concomitant]
     Active Substance: ACETAMINOPHEN
     Dosage: 1.000G QD
     Route: 048
     Dates: start: 20240429, end: 20240429
  18. ACETAMINOPHEN [Concomitant]
     Active Substance: ACETAMINOPHEN
     Dosage: 1.000G QD
     Route: 048
     Dates: start: 20240507, end: 20240507
  19. ACETAMINOPHEN [Concomitant]
     Active Substance: ACETAMINOPHEN
     Dosage: 1.000G QD
     Route: 048
     Dates: start: 20240514, end: 20240514
  20. POLARAMINE [Concomitant]
     Active Substance: DEXCHLORPHENIRAMINE MALEATE
     Dosage: 5.000MG QD
     Route: 042
     Dates: start: 20240429, end: 20240429
  21. POLARAMINE [Concomitant]
     Active Substance: DEXCHLORPHENIRAMINE MALEATE
     Dosage: 5.000MG QD
     Route: 042
     Dates: start: 20240507, end: 20240507
  22. POLARAMINE [Concomitant]
     Active Substance: DEXCHLORPHENIRAMINE MALEATE
     Dosage: 5.000MG QD
     Route: 042
     Dates: start: 20240514, end: 20240514
  23. POLARAMINE [Concomitant]
     Active Substance: DEXCHLORPHENIRAMINE MALEATE
     Indication: Product used for unknown indication
     Dosage: QD
     Route: 042
     Dates: start: 20240410, end: 20240410
  24. POLATUZUMAB VEDOTIN [Concomitant]
     Active Substance: POLATUZUMAB VEDOTIN
     Indication: Diffuse large B-cell lymphoma
     Dosage: START DATE OF MOST RECENT DOSE OF STUDY DRUGPRIOR TO AE/SAE 29/APR/2024
     Route: 042
     Dates: start: 20240410
  25. PRAVASTATIN [Concomitant]
     Active Substance: PRAVASTATIN
     Indication: Dyslipidaemia
     Dosage: 20.000MG QD
     Route: 048
  26. PRIMPERAN [Concomitant]
     Active Substance: METOCLOPRAMIDE HYDROCHLORIDE
     Indication: Product used for unknown indication
     Route: 048
     Dates: start: 20240409
  27. RITUXIMAB [Concomitant]
     Active Substance: RITUXIMAB
     Indication: Diffuse large B-cell lymphoma
     Dosage: ON 29/APR/2024, HE RECEIVED MOST RECENT DOSE OF RITUXIMAB PRIOR TO AE AND SAE 731 MG
     Route: 042
     Dates: start: 20240410
  28. SERETIDE [Concomitant]
     Active Substance: FLUTICASONE PROPIONATE\SALMETEROL XINAFOATE
     Indication: Asthma exercise induced
     Route: 048
  29. SINGULAIR [Concomitant]
     Active Substance: MONTELUKAST SODIUM
     Indication: Asthma
     Dosage: 10.000MG QD
     Route: 048
  30. VALACYCLOVIR HYDROCHLORIDE [Concomitant]
     Active Substance: VALACYCLOVIR HYDROCHLORIDE
     Indication: Product used for unknown indication
     Route: 048
     Dates: start: 20240409
  31. FILGRASTIM [Concomitant]
     Active Substance: FILGRASTIM
     Indication: Product used for unknown indication
     Dosage: 48000.000IU QD
     Route: 058
     Dates: start: 20240504, end: 20240508
  32. ONDANSETRON [Concomitant]
     Active Substance: ONDANSETRON
     Indication: Product used for unknown indication
     Route: 048
     Dates: start: 20240409

REACTIONS (1)
  - Cytokine release syndrome [Recovered/Resolved]

NARRATIVE: CASE EVENT DATE: 20240508
